FAERS Safety Report 7154521-1 (Version None)
Quarter: 2010Q4

REPORT INFORMATION
  Report Type: 
  Country: None (occurrence: None)
  Receive Date: 20101214
  Receipt Date: 20091104
  Transmission Date: 20110411
  Serious: No
  Sender: FDA-Public Use
  Company Number: US-AMGEN-KDL365578

PATIENT

DRUGS (20)
  1. ENBREL [Suspect]
     Indication: RHEUMATOID ARTHRITIS
     Dosage: 50 MG, QWK
     Route: 058
     Dates: start: 20090828
  2. HYDROXYCHLOROQUINE SULFATE [Concomitant]
     Dosage: 200 MG, BID
     Route: 048
  3. METHOTREXATE [Concomitant]
     Dosage: 20 MG, QWK
     Route: 048
  4. CYCLOBENZAPRINE HCL [Concomitant]
     Dosage: 10 MG, QD
     Route: 048
  5. OXYCODONE HCL AND ACETAMINOPHEN [Concomitant]
     Dosage: UNK UNK, PRN
     Route: 048
  6. CELEXA [Concomitant]
     Dosage: 60 MG, QD
     Route: 048
  7. ALPRAZOLAM [Concomitant]
     Dosage: .25 MG, TID
     Route: 048
  8. ALBUTEROL SULFATE [Concomitant]
     Dosage: UNK UNK, Q6H
  9. GUAIFENESIN AND PSEUDOEPHEDRINE HYDROCHLORIDE [Concomitant]
     Dosage: UNK UNK, QD
     Route: 048
  10. SEREVENT [Concomitant]
     Dosage: 50 A?G, BID
     Route: 048
  11. CALCIUM CARBONATE [Concomitant]
     Dosage: UNK UNK, QD
     Route: 048
  12. FOLIC ACID [Concomitant]
     Dosage: 1 MG, QD
     Route: 048
  13. FEXOFENADINE HCL [Concomitant]
     Dosage: 60 MG, BID
     Route: 048
  14. ESTRADIOL, NORETHINDRONE ACETATE [Concomitant]
     Dosage: UNK UNK, QD
     Route: 048
  15. AZELASTINE HCL [Concomitant]
     Dosage: UNK UNK, UNK
  16. ERGOCALCIFEROL [Concomitant]
     Dosage: UNK UNK, QWK
  17. LISINOPRIL [Concomitant]
     Dosage: 20 MG, QD
     Route: 048
  18. OMEPRAZOLE [Concomitant]
     Dosage: 20 MG, QD
  19. MEPERIDINE HYDROCHLORIDE [Concomitant]
     Dosage: 50 MG, UNK
  20. PREDNISONE [Concomitant]
     Dosage: 5 MG, QD

REACTIONS (8)
  - ASTHMA [None]
  - DRUG INEFFECTIVE [None]
  - FEAR [None]
  - FIBROMYALGIA [None]
  - HEADACHE [None]
  - OEDEMA PERIPHERAL [None]
  - PAIN IN EXTREMITY [None]
  - SOMNOLENCE [None]
